FAERS Safety Report 17250790 (Version 1)
Quarter: 2020Q1

REPORT INFORMATION
  Report Type: Spontaneous
  Country: CA (occurrence: CA)
  Receive Date: 20200109
  Receipt Date: 20200109
  Transmission Date: 20200409
  Serious: Yes (Congenital Anomaly, Other)
  Sender: FDA-Public Use
  Company Number: CA-TEVA-2020-CA-1165066

PATIENT
  Age: 62 Year
  Sex: Male

DRUGS (2)
  1. METHOTREXATE. [Suspect]
     Active Substance: METHOTREXATE
     Indication: PRODUCT USED FOR UNKNOWN INDICATION
     Route: 065
  2. BUDESONIDE. [Concomitant]
     Active Substance: BUDESONIDE
     Route: 065

REACTIONS (5)
  - Haemophilia [Recovered/Resolved]
  - Hypertension [Recovered/Resolved]
  - Arthralgia [Recovered/Resolved]
  - Blood cholesterol increased [Recovered/Resolved]
  - Hepatitis C [Recovered/Resolved]
